FAERS Safety Report 16953003 (Version 1)
Quarter: 2019Q4

REPORT INFORMATION
  Report Type: Spontaneous
  Country: US (occurrence: US)
  Receive Date: 20191023
  Receipt Date: 20191023
  Transmission Date: 20200122
  Serious: Yes (Life-Threatening, Hospitalization, Other)
  Sender: FDA-Public Use
  Company Number: US-BRISTOL-MYERS SQUIBB COMPANY-BMS-2019-101285

PATIENT
  Age: 83 Year
  Sex: Male

DRUGS (1)
  1. NIVOLUMAB [Suspect]
     Active Substance: NIVOLUMAB
     Indication: GENITOURINARY TRACT NEOPLASM
     Dosage: UNK
     Route: 065

REACTIONS (3)
  - Myasthenia gravis [Unknown]
  - Myositis [Unknown]
  - Respiratory failure [Unknown]
